FAERS Safety Report 8603252-7 (Version None)
Quarter: 2012Q3

REPORT INFORMATION
  Report Type: 
  Country: None (occurrence: None)
  Receive Date: 20120817
  Receipt Date: 20120808
  Transmission Date: 20120928
  Serious: Yes (Hospitalization)
  Sender: FDA-Public Use
  Company Number: US-ACTELION-A-US2012-68268

PATIENT
  Age: 25 Year
  Sex: Female

DRUGS (3)
  1. EPOPROSTENOL SODIUM [Suspect]
     Indication: PULMONARY ARTERIAL HYPERTENSION
     Dosage: 39 NG/L, PER MIN
     Route: 042
     Dates: start: 20120228, end: 20120601
  2. TRACLEER [Concomitant]
     Indication: PRODUCT USED FOR UNKNOWN INDICATION
     Dosage: UNK
     Route: 048
     Dates: start: 20120618
  3. SILDENAFIL [Concomitant]

REACTIONS (5)
  - POOR PERIPHERAL CIRCULATION [None]
  - PAIN IN JAW [None]
  - BACK PAIN [None]
  - NAUSEA [None]
  - FLUSHING [None]
